FAERS Safety Report 12671070 (Version 1)
Quarter: 2016Q3

REPORT INFORMATION
  Report Type: Spontaneous
  Country: US (occurrence: None)
  Receive Date: 20160819
  Receipt Date: 20160819
  Transmission Date: 20161109
  Serious: Yes (Disabling)
  Sender: FDA-Public Use
  Company Number: None

PATIENT
  Age: 71 Year
  Sex: Male
  Weight: 90.72 kg

DRUGS (13)
  1. DIFLOCANEC GEL [Concomitant]
  2. LIODOCANE PATCHES [Concomitant]
  3. LASIX [Concomitant]
     Active Substance: FUROSEMIDE
  4. AMBIEN [Concomitant]
     Active Substance: ZOLPIDEM TARTRATE
  5. TIKOSYN [Suspect]
     Active Substance: DOFETILIDE
  6. I-CAPS VITAMINS [Concomitant]
  7. CARVEDOVOIL [Concomitant]
  8. MEDTRONIC DEFIBULATOR [Concomitant]
  9. LISINOPRIL. [Concomitant]
     Active Substance: LISINOPRIL
  10. AMLODIPINE [Concomitant]
     Active Substance: AMLODIPINE BESYLATE
  11. WARFARIN [Concomitant]
     Active Substance: WARFARIN
  12. MOTRIN [Concomitant]
     Active Substance: IBUPROFEN
  13. HYDROCODONE [Concomitant]
     Active Substance: HYDROCODONE

REACTIONS (1)
  - Abdominal pain upper [None]

NARRATIVE: CASE EVENT DATE: 20160720
